FAERS Safety Report 6257905-9 (Version None)
Quarter: 2009Q3

REPORT INFORMATION
  Report Type: 
  Country: None (occurrence: None)
  Receive Date: 20090707
  Receipt Date: 20090624
  Transmission Date: 20100115
  Serious: Yes (Other)
  Sender: FDA-Public Use
  Company Number: US-PFIZER INC-2009170158

PATIENT
  Sex: Female
  Weight: 98.413 kg

DRUGS (3)
  1. NEURONTIN [Suspect]
     Indication: NEURALGIA
     Dosage: UNK
  2. NEURONTIN [Suspect]
     Indication: NEUROPATHY PERIPHERAL
  3. LYRICA [Suspect]
     Indication: FIBROMYALGIA
     Dosage: 50 MG, 1X/DAY
     Dates: end: 20090601

REACTIONS (8)
  - ANURIA [None]
  - BACTERIAL INFECTION [None]
  - FIBROMYALGIA [None]
  - HEADACHE [None]
  - IRRITABLE BOWEL SYNDROME [None]
  - MALAISE [None]
  - MYALGIA [None]
  - WEIGHT INCREASED [None]
